FAERS Safety Report 4898587-8 (Version None)
Quarter: 2006Q1

REPORT INFORMATION
  Report Type: 
  Country: None (occurrence: None)
  Receive Date: 20060202
  Receipt Date: 20060123
  Transmission Date: 20060701
  Serious: Yes (Other)
  Sender: FDA-Public Use
  Company Number: PHBS2006JP01409

PATIENT
  Age: 70 Year
  Sex: Male

DRUGS (2)
  1. NEORAL [Suspect]
     Indication: COLLAGEN DISORDER
     Dosage: 150 MG/DAY
     Route: 048
     Dates: start: 20030101
  2. ADRENAL HORMONE PREPARATIONS [Concomitant]
     Dosage: 2 MG/DAY
     Route: 048
     Dates: start: 20030101

REACTIONS (3)
  - CATARACT OPERATION [None]
  - POSTERIOR CAPSULE OPACIFICATION [None]
  - VISUAL ACUITY REDUCED [None]
